FAERS Safety Report 7441395-4 (Version None)
Quarter: 2011Q2

REPORT INFORMATION
  Report Type: 
  Country: None (occurrence: None)
  Receive Date: 20110428
  Receipt Date: 20110418
  Transmission Date: 20111010
  Serious: Yes (Hospitalization)
  Sender: FDA-Public Use
  Company Number: BE-ELI_LILLY_AND_COMPANY-BE201103004063

PATIENT
  Sex: Male
  Weight: 68 kg

DRUGS (4)
  1. GEMCITABINE HYDROCHLORIDE [Suspect]
     Indication: NON-SMALL CELL LUNG CANCER
     Dosage: 1250 MG/M2, DAYS 1 AND 8 EVERY 3 WEEK CYCLE
     Route: 042
     Dates: start: 20101005
  2. CISPLATIN [Suspect]
     Indication: NON-SMALL CELL LUNG CANCER
     Dosage: 75 MG/M2, EVERY 3 WEEKS
     Route: 042
     Dates: start: 20101006
  3. OTHER PHARMA COMPANY INV DRUG [Suspect]
     Indication: NON-SMALL CELL LUNG CANCER
     Dosage: 2000MG, ONCE WEEKLY
     Route: 042
     Dates: start: 20101005
  4. CETUXIMAB [Suspect]
     Indication: NON-SMALL CELL LUNG CANCER
     Dosage: 250 MG/M2, WEEKLY
     Route: 042
     Dates: start: 20101005

REACTIONS (1)
  - ABDOMINAL PAIN [None]
